FAERS Safety Report 22156850 (Version 2)
Quarter: 2023Q2

REPORT INFORMATION
  Report Type: Spontaneous
  Country: KR (occurrence: KR)
  Receive Date: 20230330
  Receipt Date: 20230413
  Transmission Date: 20230721
  Serious: Yes (Death)
  Sender: FDA-Public Use
  Company Number: KR-TEVA-2023-KR-2870773

PATIENT
  Age: 63 Year
  Sex: Male

DRUGS (6)
  1. ETOPOSIDE [Suspect]
     Active Substance: ETOPOSIDE
     Indication: Hepatocellular carcinoma
     Dosage: RECEIVED AS ADJUVANT CHEMOTHERAPY
     Route: 065
  2. ETOPOSIDE [Suspect]
     Active Substance: ETOPOSIDE
     Indication: Neuroendocrine carcinoma
  3. CISPLATIN [Suspect]
     Active Substance: CISPLATIN
     Indication: Hepatocellular carcinoma
     Dosage: RECEIVED AS ADJUVANT CHEMOTHERAPY
     Route: 065
  4. CISPLATIN [Suspect]
     Active Substance: CISPLATIN
     Indication: Neuroendocrine carcinoma
  5. IRINOTECAN [Suspect]
     Active Substance: IRINOTECAN
     Indication: Hepatocellular carcinoma
     Dosage: RECEIVED AS ADJUVANT CHEMOTHERAPY
     Route: 065
  6. IRINOTECAN [Suspect]
     Active Substance: IRINOTECAN
     Indication: Neuroendocrine carcinoma

REACTIONS (1)
  - Drug ineffective [Fatal]
